FAERS Safety Report 7671100-8 (Version None)
Quarter: 2011Q3

REPORT INFORMATION
  Report Type: 
  Country: None (occurrence: None)
  Receive Date: 20110809
  Receipt Date: 20110729
  Transmission Date: 20111222
  Serious: Yes (Hospitalization, Other)
  Sender: FDA-Public Use
  Company Number: US-AMGEN-USASP2011031108

PATIENT
  Age: 53 Year
  Sex: Female

DRUGS (4)
  1. ENBREL [Suspect]
     Indication: RHEUMATOID ARTHRITIS
     Dosage: 50 MG, QWK
     Dates: start: 19990401
  2. LEVAQUIN [Concomitant]
  3. METHADONE HYDROCHLORIDE [Concomitant]
  4. ENBREL [Suspect]
     Indication: SYSTEMIC LUPUS ERYTHEMATOSUS

REACTIONS (8)
  - MYOCARDIAL INFARCTION [None]
  - UPPER LIMB FRACTURE [None]
  - SYSTEMIC LUPUS ERYTHEMATOSUS [None]
  - CEREBROVASCULAR ACCIDENT [None]
  - DRUG INTERACTION [None]
  - STAPHYLOCOCCAL INFECTION [None]
  - POST PROCEDURAL COMPLICATION [None]
  - INCISION SITE INFECTION [None]
